FAERS Safety Report 8543659-X (Version None)
Quarter: 2012Q3

REPORT INFORMATION
  Report Type: 
  Country: None (occurrence: None)
  Receive Date: 20120727
  Receipt Date: 20120717
  Transmission Date: 20120928
  Serious: Yes (Hospitalization)
  Sender: FDA-Public Use
  Company Number: ES-JNJFOC-20110200318

PATIENT
  Age: 31 Year
  Sex: Male

DRUGS (4)
  1. INVEGA [Suspect]
     Indication: SCHIZOPHRENIA
     Route: 048
     Dates: end: 20110101
  2. PROZAC [Concomitant]
     Indication: PRODUCT USED FOR UNKNOWN INDICATION
     Route: 065
  3. VESICARE [Concomitant]
     Indication: PRODUCT USED FOR UNKNOWN INDICATION
     Route: 065
  4. ZYPREXA [Suspect]
     Indication: SCHIZOPHRENIA
     Route: 065

REACTIONS (6)
  - INCORRECT DOSE ADMINISTERED [None]
  - MULTIPLE DRUG OVERDOSE INTENTIONAL [None]
  - ELECTROCARDIOGRAM REPOLARISATION ABNORMALITY [None]
  - SINUS TACHYCARDIA [None]
  - SUICIDE ATTEMPT [None]
  - PSYCHOTIC DISORDER [None]
